FAERS Safety Report 15323660 (Version 1)
Quarter: 2018Q3

REPORT INFORMATION
  Report Type: Report from Study
  Country: None (occurrence: US)
  Receive Date: 20180827
  Receipt Date: 20180827
  Transmission Date: 20181010
  Serious: Yes (Hospitalization)
  Sender: FDA-Public Use
  Company Number: US-ABBVIE-16K-163-1784093-00

PATIENT
  Age: 44 Year
  Sex: Male

DRUGS (2)
  1. HUMIRA [Suspect]
     Active Substance: ADALIMUMAB
     Indication: CROHN^S DISEASE
     Route: 058
  2. REMICADE [Suspect]
     Active Substance: INFLIXIMAB
     Indication: PRODUCT USED FOR UNKNOWN INDICATION
     Route: 065

REACTIONS (32)
  - Immunodeficiency [Recovering/Resolving]
  - Haemorrhoids [Not Recovered/Not Resolved]
  - Frequent bowel movements [Recovering/Resolving]
  - Vitamin B12 deficiency [Recovering/Resolving]
  - Haemorrhoids [Recovering/Resolving]
  - Chills [Unknown]
  - Infectious colitis [Recovering/Resolving]
  - Diarrhoea haemorrhagic [Recovering/Resolving]
  - Oral fungal infection [Recovering/Resolving]
  - Blister [Recovering/Resolving]
  - Diarrhoea [Unknown]
  - Seasonal allergy [Not Recovered/Not Resolved]
  - Mucous stools [Unknown]
  - Therapeutic response shortened [Unknown]
  - Dehydration [Unknown]
  - Nausea [Not Recovered/Not Resolved]
  - Frequent bowel movements [Unknown]
  - Crohn^s disease [Recovering/Resolving]
  - Tooth disorder [Recovering/Resolving]
  - Cartilage injury [Not Recovered/Not Resolved]
  - Allergic respiratory symptom [Not Recovered/Not Resolved]
  - Stress [Unknown]
  - Fall [Recovering/Resolving]
  - Haemorrhoids [Unknown]
  - Food intolerance [Recovering/Resolving]
  - Joint instability [Recovering/Resolving]
  - Arthralgia [Not Recovered/Not Resolved]
  - Pain in extremity [Not Recovered/Not Resolved]
  - Crohn^s disease [Recovering/Resolving]
  - Gastric infection [Unknown]
  - Abdominal pain upper [Unknown]
  - Vomiting [Unknown]

NARRATIVE: CASE EVENT DATE: 201807
